FAERS Safety Report 5660949-9 (Version None)
Quarter: 2008Q1

REPORT INFORMATION
  Report Type: 
  Country: None (occurrence: None)
  Receive Date: 20080311
  Receipt Date: 20080303
  Transmission Date: 20080703
  Serious: Yes (Death, Hospitalization, Other)
  Sender: FDA-Public Use
  Company Number: DE-ABBOTT-08P-062-0439924-00

PATIENT
  Sex: Female

DRUGS (40)
  1. KLACID [Suspect]
     Indication: PNEUMONIA
     Route: 048
     Dates: start: 20030822, end: 20030830
  2. DICLOFENAC SODIUM [Suspect]
     Indication: PAIN
     Route: 048
     Dates: start: 20030811, end: 20030815
  3. HYDERGIN FORTE [Suspect]
     Indication: CEREBROVASCULAR DISORDER
     Dosage: FORTE
     Route: 048
     Dates: start: 20030811, end: 20030815
  4. XIPAMIDE [Suspect]
     Indication: OEDEMA
     Route: 048
     Dates: start: 20030817, end: 20030908
  5. POLIHEXANIDE [Suspect]
     Indication: SKIN ULCER
     Route: 042
     Dates: start: 20030817, end: 20030908
  6. PREDNISOLONE SODIUM SUCCINATE INJ [Suspect]
     Indication: RASH
     Route: 042
     Dates: start: 20030908, end: 20030908
  7. TPN ELECTROLYTES IN PLASTIC CONTAINER [Suspect]
     Indication: ELECTROLYTE SUBSTITUTION THERAPY
     Route: 042
     Dates: start: 20030908, end: 20030908
  8. MORPHINE [Suspect]
     Indication: PAIN
     Route: 058
     Dates: start: 20030908, end: 20030908
  9. MORPHINE [Suspect]
     Route: 048
     Dates: start: 20030908, end: 20030908
  10. METAMIZOLE SODIUM MONOHYDRATE [Suspect]
     Indication: PAIN
     Route: 042
     Dates: start: 20030908, end: 20030908
  11. METAMIZOLE SODIUM MONOHYDRATE [Suspect]
     Route: 048
     Dates: start: 20030904, end: 20030904
  12. METAMIZOLE SODIUM MONOHYDRATE [Suspect]
     Route: 048
     Dates: start: 20030817, end: 20030818
  13. CLEMASTINE FUMARATE [Suspect]
     Indication: PRURITUS
     Route: 048
     Dates: start: 20030907, end: 20030908
  14. CLEMASTINE FUMARATE [Suspect]
     Indication: URTICARIA
  15. FLUCONAZOLE [Suspect]
     Indication: CANDIDIASIS
     Route: 048
     Dates: start: 20030907, end: 20030907
  16. DIAZEPAM [Suspect]
     Indication: SLEEP DISORDER
     Route: 048
     Dates: start: 20030907, end: 20030907
  17. LOPERAMIDE HYDROCHLORIDE [Suspect]
     Indication: DIARRHOEA
     Route: 048
     Dates: start: 20030906, end: 20030906
  18. MOMETASONE FUROATE [Suspect]
     Indication: RASH
     Route: 061
     Dates: start: 20030831, end: 20030907
  19. AUGMENTIN '125' [Suspect]
     Indication: PNEUMONIA
     Route: 048
     Dates: start: 20030903, end: 20030905
  20. CALCIUM [Suspect]
     Indication: MINERAL SUPPLEMENTATION
     Route: 048
     Dates: start: 20030825, end: 20030908
  21. CALCIUM [Suspect]
     Route: 042
     Dates: start: 20030817, end: 20030820
  22. SCANDICAIN 1% [Suspect]
     Indication: ANAESTHESIA
     Route: 058
     Dates: start: 20030829, end: 20030829
  23. CEFTRIAXONE [Suspect]
     Indication: CYSTITIS
     Route: 042
     Dates: start: 20030822, end: 20030829
  24. ACETAMINOPHEN [Suspect]
     Indication: PYREXIA
     Dates: start: 20030822, end: 20030822
  25. ACETAMINOPHEN [Suspect]
     Dates: start: 20030830, end: 20030830
  26. ACETAMINOPHEN [Suspect]
     Dates: start: 20030905, end: 20030907
  27. FUROSEMIDE [Suspect]
     Indication: OEDEMA
     Route: 050
     Dates: start: 20030818, end: 20030823
  28. CIPROFLOXACIN [Suspect]
     Indication: CYSTITIS
     Route: 048
     Dates: start: 20030820, end: 20030823
  29. CIPROFLOXACIN [Suspect]
     Dates: start: 20030825, end: 20030825
  30. NITRAZEPAM [Suspect]
     Indication: SLEEP DISORDER
     Route: 048
     Dates: start: 20030811, end: 20030815
  31. NITROLINGUAL N-SPRAY [Suspect]
     Indication: CORONARY ARTERY DISEASE
     Route: 048
     Dates: start: 20030811, end: 20030815
  32. MOLSIDOMIN RATIOPHARM [Suspect]
     Indication: CORONARY ARTERY DISEASE
     Route: 048
     Dates: start: 20030811, end: 20030815
  33. BEZABETA RETARD [Suspect]
     Indication: HYPERCHOLESTEROLAEMIA
     Route: 048
     Dates: start: 20030811, end: 20030815
  34. RANITIDIN RATIOPHARM [Suspect]
     Indication: CORONARY ARTERY DISEASE
     Route: 048
     Dates: start: 20030811, end: 20030815
  35. ISOSORBIDE DINITRATE [Suspect]
     Indication: CORONARY ARTERY DISEASE
     Dates: start: 20030811, end: 20030901
  36. POTASSIUM CHLORIDE [Suspect]
     Indication: MINERAL SUPPLEMENTATION
     Route: 048
     Dates: start: 20030816, end: 20030820
  37. SODIUM CHLORIDE INJ [Suspect]
     Indication: FLUID REPLACEMENT
     Route: 042
     Dates: start: 20030816, end: 20030818
  38. SODIUM CHLORIDE INJ [Suspect]
     Dates: start: 20030820, end: 20030821
  39. CORVATON RETARD [Suspect]
     Indication: CORONARY ARTERY DISEASE
     Route: 048
     Dates: start: 20030816, end: 20030908
  40. FUROSEMIDE [Suspect]
     Route: 042
     Dates: start: 20030817, end: 20030817

REACTIONS (5)
  - DYSPHAGIA [None]
  - GASTROENTERITIS [None]
  - PNEUMONIA [None]
  - STEVENS-JOHNSON SYNDROME [None]
  - TOXIC EPIDERMAL NECROLYSIS [None]
